FAERS Safety Report 8997075 (Version 12)
Quarter: 2013Q3

REPORT INFORMATION
  Report Type: Report from Study
  Country: AU (occurrence: AU)
  Receive Date: 20130104
  Receipt Date: 20130903
  Transmission Date: 20140515
  Serious: Yes (Hospitalization)
  Sender: FDA-Public Use
  Company Number: AU-ROCHE-1169277

PATIENT
  Age: 74 Year
  Sex: Male
  Weight: 73 kg

DRUGS (32)
  1. RITUXIMAB [Suspect]
     Indication: CHRONIC LYMPHOCYTIC LEUKAEMIA
     Route: 042
     Dates: start: 20121203, end: 20121212
  2. ABT-199 [Suspect]
     Indication: CHRONIC LYMPHOCYTIC LEUKAEMIA
     Route: 048
     Dates: start: 20121112, end: 20121118
  3. ABT-199 [Suspect]
     Route: 048
     Dates: start: 20121119, end: 20121125
  4. ABT-199 [Suspect]
     Route: 048
     Dates: start: 20121126, end: 20121202
  5. ABT-199 [Suspect]
     Route: 048
     Dates: start: 20121203, end: 20121210
  6. ABT-199 [Suspect]
     Route: 048
     Dates: start: 20121211, end: 20121213
  7. ABT-199 [Suspect]
     Route: 048
     Dates: start: 20130108, end: 20130113
  8. ABT-199 [Suspect]
     Route: 048
     Dates: start: 20130114
  9. ALLOPURINOL [Concomitant]
     Indication: PROPHYLAXIS
     Route: 048
     Dates: start: 20121029, end: 20130430
  10. PARACETAMOL [Concomitant]
     Indication: BACK PAIN
     Route: 048
     Dates: start: 201210
  11. PARACETAMOL [Concomitant]
     Indication: INFUSION RELATED REACTION
     Route: 048
     Dates: start: 20121203, end: 20121203
  12. PARACETAMOL [Concomitant]
     Route: 048
     Dates: start: 20121203, end: 20121203
  13. ATORVASTATIN [Concomitant]
     Indication: HYPERCHOLESTEROLAEMIA
     Route: 065
     Dates: start: 200606, end: 20121029
  14. RAMIPRIL [Concomitant]
     Indication: HYPERTENSION
     Route: 048
     Dates: start: 200512, end: 20051209
  15. ENDONE [Concomitant]
     Indication: BACK PAIN
     Route: 065
     Dates: start: 20121024
  16. OXYCODONE CR [Concomitant]
     Indication: BACK PAIN
     Route: 065
     Dates: start: 20121024, end: 20121031
  17. OXYCODONE CR [Concomitant]
     Route: 065
     Dates: start: 20121101, end: 20121202
  18. OXYCODONE CR [Concomitant]
     Route: 065
     Dates: start: 20121203, end: 20121204
  19. DOCUSATE SODIUM\SENNOSIDES [Concomitant]
     Indication: CONSTIPATION
     Dosage: 2 TAB , 2 TIMES IN A DAY
     Route: 065
     Dates: start: 20121024
  20. LACTULOSE [Concomitant]
     Indication: CONSTIPATION
     Route: 065
     Dates: start: 20121024
  21. DEXAMETHASONE [Concomitant]
     Indication: CHRONIC LYMPHOCYTIC LEUKAEMIA
     Route: 065
     Dates: start: 201209, end: 20121027
  22. DEXAMETHASONE [Concomitant]
     Route: 042
     Dates: start: 20121214, end: 20121216
  23. DEXAMETHASONE [Concomitant]
     Route: 042
     Dates: start: 20121221
  24. DEXAMETHASONE [Concomitant]
     Route: 048
     Dates: start: 20121225, end: 20121226
  25. DEXAMETHASONE [Concomitant]
     Route: 048
     Dates: start: 20121227, end: 20121230
  26. DEXAMETHASONE [Concomitant]
     Route: 048
     Dates: start: 20121231, end: 20130101
  27. DEXAMETHASONE [Concomitant]
     Route: 048
     Dates: start: 20130102, end: 20130104
  28. OMEPRAZOLE [Concomitant]
     Indication: GASTROOESOPHAGEAL REFLUX DISEASE
     Route: 065
     Dates: start: 20121029, end: 20130324
  29. ACYCLOVIR [Concomitant]
     Route: 065
     Dates: start: 20121029, end: 20121214
  30. BACTRIM [Concomitant]
     Dosage: TWICE A DAY MONDAY AND THURSDAY (1 TAB)
     Route: 065
     Dates: start: 20121029
  31. TRIMETHOPRIM [Concomitant]
     Indication: URINARY TRACT INFECTION
     Route: 065
     Dates: start: 20121029, end: 20121104
  32. ALENDRONATE [Concomitant]
     Indication: OSTEOPOROSIS
     Route: 065
     Dates: start: 20121123

REACTIONS (3)
  - Infusion related reaction [Recovered/Resolved]
  - Histiocytosis haematophagic [Recovered/Resolved]
  - Pyrexia [Unknown]
